FAERS Safety Report 18606386 (Version 1)
Quarter: 2020Q4

REPORT INFORMATION
  Report Type: Spontaneous
  Country: DE (occurrence: DE)
  Receive Date: 20201211
  Receipt Date: 20201211
  Transmission Date: 20210114
  Serious: Yes (Hospitalization, Other)
  Sender: FDA-Public Use
  Company Number: DE-TEVA-2020-DE-1856754

PATIENT
  Age: 70 Year
  Sex: Male
  Weight: 92 kg

DRUGS (25)
  1. ETOPOSIDE. [Suspect]
     Active Substance: ETOPOSIDE
     Dosage: 120 MG/M2 DAILY;
     Route: 042
     Dates: start: 20191209, end: 20191211
  2. ETOPOSIDE. [Suspect]
     Active Substance: ETOPOSIDE
     Dosage: 120 MILLIGRAM PER GRAM DAILY;
     Route: 042
     Dates: start: 20190827, end: 20190829
  3. ATEZOLIZUMAB. [Concomitant]
     Active Substance: ATEZOLIZUMAB
     Dosage: 1200 MILLIGRAM DAILY;
     Route: 065
     Dates: start: 20190926, end: 20190928
  4. ACETYLSALICYLIC ACID [Concomitant]
     Active Substance: ASPIRIN
     Indication: PRODUCT USED FOR UNKNOWN INDICATION
     Dosage: UNK
     Route: 065
     Dates: start: 200503
  5. L-THYROXIN [LEVOTHYROXINE] [Concomitant]
     Active Substance: LEVOTHYROXINE SODIUM
     Indication: HYPOTHYROIDISM
     Dosage: UNK
     Route: 065
     Dates: start: 2004
  6. ETOPOSIDE. [Suspect]
     Active Substance: ETOPOSIDE
     Indication: LUNG NEOPLASM MALIGNANT
     Dosage: 120 MG/M2 DAILY;
     Route: 042
     Dates: start: 20191108, end: 20191110
  7. ETOPOSIDE. [Suspect]
     Active Substance: ETOPOSIDE
     Dosage: 140 MG/M2 DAILY;
     Route: 042
     Dates: start: 20190926, end: 20190928
  8. CARBOPLATIN. [Suspect]
     Active Substance: CARBOPLATIN
     Indication: LUNG NEOPLASM MALIGNANT
     Dosage: 5  AUC, QD
     Route: 042
     Dates: start: 20190926, end: 20190928
  9. METOPROLOL. [Concomitant]
     Active Substance: METOPROLOL
     Indication: HYPERTENSION
     Dosage: UNK
     Route: 065
     Dates: start: 200503
  10. EZETIMIBE. [Concomitant]
     Active Substance: EZETIMIBE
     Indication: HYPERLIPIDAEMIA
     Dosage: UNK
     Route: 065
     Dates: start: 201311
  11. SIMVASTATIN. [Concomitant]
     Active Substance: SIMVASTATIN
     Indication: HYPERLIPIDAEMIA
     Dosage: UNK
     Route: 065
     Dates: start: 201311
  12. CARBOPLATIN. [Suspect]
     Active Substance: CARBOPLATIN
     Dosage: 6 AUC, QD
     Route: 042
     Dates: start: 20190827, end: 20190829
  13. CARBOPLATIN. [Suspect]
     Active Substance: CARBOPLATIN
     Dosage: 5  AUC, QD
     Route: 042
     Dates: start: 20191108, end: 20191110
  14. ATEZOLIZUMAB. [Concomitant]
     Active Substance: ATEZOLIZUMAB
     Dosage: 1200 MILLIGRAM DAILY;
     Route: 065
     Dates: start: 20200109, end: 20200111
  15. ETOPOSIDE. [Suspect]
     Active Substance: ETOPOSIDE
     Dosage: 120 MG/M2 DAILY;
     Route: 042
     Dates: start: 20191018, end: 20191020
  16. ETOPOSIDE. [Suspect]
     Active Substance: ETOPOSIDE
     Dosage: 120 MG/M2
     Route: 042
     Dates: start: 20190926, end: 20190928
  17. CARBOPLATIN. [Suspect]
     Active Substance: CARBOPLATIN
     Dosage: 5  AUC, QD
     Route: 042
     Dates: start: 20191018, end: 20191020
  18. ENALAPRIL [Concomitant]
     Active Substance: ENALAPRIL
     Indication: HYPERTENSION
     Dosage: UNK
     Route: 065
     Dates: start: 200503
  19. PF-0642509; PLACEBO [Suspect]
     Active Substance: INVESTIGATIONAL PRODUCT
     Indication: CLOSTRIDIUM DIFFICILE IMMUNISATION
     Dosage: SINGLE DOSE (REGIMEN: 0, 1, 6 MONTHS)
     Dates: start: 20180821, end: 20180821
  20. CARBOPLATIN. [Suspect]
     Active Substance: CARBOPLATIN
     Dosage: 5  AUC, QD
     Route: 042
     Dates: start: 20200109, end: 20200111
  21. CARBOPLATIN. [Suspect]
     Active Substance: CARBOPLATIN
     Dosage: 5  AUC, QD
     Route: 042
     Dates: start: 20191209, end: 20191211
  22. PF-0642509; PLACEBO [Suspect]
     Active Substance: INVESTIGATIONAL PRODUCT
     Dosage: SINGLE DOSE (REGIMEN: 0, 1, 6 MONTHS)
     Dates: start: 20190121, end: 20190121
  23. ETOPOSIDE. [Suspect]
     Active Substance: ETOPOSIDE
     Dosage: 120 MG/M2 DAILY;
     Route: 042
     Dates: start: 20200109, end: 20200111
  24. PF-0642509; PLACEBO [Suspect]
     Active Substance: INVESTIGATIONAL PRODUCT
     Dosage: SINGLE DOSE (REGIMEN: 0, 1, 6 MONTHS)
     Dates: start: 20180711, end: 20180711
  25. ATEZOLIZUMAB. [Concomitant]
     Active Substance: ATEZOLIZUMAB
     Indication: PRODUCT USED FOR UNKNOWN INDICATION
     Dosage: 1200 MILLIGRAM DAILY;
     Route: 065
     Dates: start: 20200207

REACTIONS (2)
  - Pancytopenia [Not Recovered/Not Resolved]
  - Pyrexia [Unknown]

NARRATIVE: CASE EVENT DATE: 20190906
